FAERS Safety Report 7359319-7 (Version None)
Quarter: 2011Q1

REPORT INFORMATION
  Report Type: 
  Country: None (occurrence: None)
  Receive Date: 20110317
  Receipt Date: 20090916
  Transmission Date: 20110831
  Serious: Yes (Other)
  Sender: FDA-Public Use
  Company Number: US-PFIZER INC-2009270783

PATIENT
  Sex: Female
  Weight: 52.616 kg

DRUGS (2)
  1. AMOXICILLIN [Concomitant]
  2. NORVASC [Suspect]
     Indication: HYPERTENSION
     Dosage: 2.5 MG, 1X/DAY
     Route: 048
     Dates: start: 20090101

REACTIONS (6)
  - NOCTURIA [None]
  - STRESS [None]
  - BREAST PAIN [None]
  - CHEST PAIN [None]
  - SYNOVITIS [None]
  - RENAL DISORDER [None]
